FAERS Safety Report 25521876 (Version 2)
Quarter: 2025Q3

REPORT INFORMATION
  Report Type: Report from Study
  Country: US (occurrence: US)
  Receive Date: 20250706
  Receipt Date: 20250722
  Transmission Date: 20251020
  Serious: Yes (Hospitalization, Other)
  Sender: ABBVIE
  Company Number: US-ABBVIE-6353673

PATIENT
  Age: 56 Year
  Sex: Male
  Weight: 66.678 kg

DRUGS (9)
  1. CREON [Suspect]
     Active Substance: PANCRELIPASE AMYLASE\PANCRELIPASE LIPASE\PANCRELIPASE PROTEASE
     Indication: Pancreatic failure
     Route: 048
     Dates: start: 202404
  2. CREON [Suspect]
     Active Substance: PANCRELIPASE AMYLASE\PANCRELIPASE LIPASE\PANCRELIPASE PROTEASE
     Indication: Pancreatic failure
     Route: 048
     Dates: start: 202502
  3. INSULIN NOS [Concomitant]
     Active Substance: INSULIN NOS
     Indication: Diabetes mellitus
  4. ELIQUIS [Concomitant]
     Active Substance: APIXABAN
     Indication: Anticoagulant therapy
  5. ASPIRIN [Concomitant]
     Active Substance: ASPIRIN
     Indication: Anticoagulant therapy
  6. VITAMIN D [Concomitant]
     Active Substance: VITAMIN D NOS
     Indication: Vitamin supplementation
  7. Guar [Concomitant]
     Indication: Diarrhoea
  8. REMERON [Concomitant]
     Active Substance: MIRTAZAPINE
     Indication: Product used for unknown indication
  9. IMODIUM [Concomitant]
     Active Substance: LOPERAMIDE HYDROCHLORIDE
     Indication: Abnormal faeces

REACTIONS (11)
  - Portal vein thrombosis [Unknown]
  - Thrombosis [Recovered/Resolved]
  - Pyrexia [Recovered/Resolved]
  - Septic shock [Recovered/Resolved]
  - Liver function test increased [Unknown]
  - Enterobacter infection [Recovered/Resolved]
  - Back pain [Recovered/Resolved]
  - Fall [Unknown]
  - Pancreatectomy [Unknown]
  - Pancreaticoduodenectomy [Unknown]
  - Flap surgery [Unknown]

NARRATIVE: CASE EVENT DATE: 20250101
